FAERS Safety Report 4748290-X (Version None)
Quarter: 2005Q3

REPORT INFORMATION
  Report Type: 
  Country: None (occurrence: None)
  Receive Date: 20050815
  Receipt Date: 20050627
  Transmission Date: 20060218
  Serious: No
  Sender: FDA-Public Use
  Company Number: USA0506101457

PATIENT
  Sex: Male

DRUGS (1)
  1. CIALIS [Suspect]

REACTIONS (1)
  - THERAPEUTIC RESPONSE DECREASED [None]
